FAERS Safety Report 8309260-8 (Version None)
Quarter: 2012Q2

REPORT INFORMATION
  Report Type: 
  Country: None (occurrence: None)
  Receive Date: 20120424
  Receipt Date: 20120419
  Transmission Date: 20120825
  Serious: Yes (Hospitalization, Other)
  Sender: FDA-Public Use
  Company Number: US-AMGEN-USASP2011036266

PATIENT
  Age: 31 Year
  Sex: Female

DRUGS (5)
  1. FOLIC [Concomitant]
     Dosage: UNK UNK, QD
     Route: 048
  2. ENBREL [Suspect]
     Indication: ANKYLOSING SPONDYLITIS
     Dosage: 50 MG, QWK
     Route: 058
     Dates: start: 20120306
  3. ENBREL [Suspect]
     Dosage: 50 MG, QWK
     Dates: end: 20111228
  4. PRENATAL VITAMINS                  /01549301/ [Concomitant]
     Dosage: UNK UNK, QD
     Route: 048
  5. ENBREL [Suspect]
     Dosage: 50 MG, QWK
     Route: 058
     Dates: start: 20080501, end: 20110603

REACTIONS (10)
  - JOINT SWELLING [None]
  - ARTHRITIS [None]
  - ULTRASOUND ANTENATAL SCREEN ABNORMAL [None]
  - OVARIAN CYST [None]
  - ABDOMINAL PAIN [None]
  - APPENDICITIS [None]
  - ARTHRALGIA [None]
  - ANKYLOSING SPONDYLITIS [None]
  - TENDONITIS [None]
  - PREGNANCY [None]
